FAERS Safety Report 17967720 (Version 5)
Quarter: 2023Q4

REPORT INFORMATION
  Report Type: Spontaneous
  Country: US (occurrence: US)
  Receive Date: 20200701
  Receipt Date: 20231220
  Transmission Date: 20240110
  Serious: No
  Sender: FDA-Public Use
  Company Number: US-PFIZER INC-2020252621

PATIENT
  Age: 73 Year
  Sex: Female
  Weight: 86.18 kg

DRUGS (2)
  1. IBRANCE [Suspect]
     Active Substance: PALBOCICLIB
     Indication: Neoplasm malignant
     Dosage: 125 MG, 1X/DAY
     Route: 048
  2. IBRANCE [Suspect]
     Active Substance: PALBOCICLIB
     Dosage: 75 MG

REACTIONS (5)
  - Muscular weakness [Unknown]
  - Full blood count abnormal [Unknown]
  - Memory impairment [Unknown]
  - Product storage error [Unknown]
  - Arthropathy [Unknown]

NARRATIVE: CASE EVENT DATE: 20200401
